FAERS Safety Report 6493370-4 (Version None)
Quarter: 2009Q4

REPORT INFORMATION
  Report Type: 
  Country: None (occurrence: None)
  Receive Date: 20091214
  Receipt Date: 20091209
  Transmission Date: 20100525
  Serious: Yes (Death, Hospitalization, Other)
  Sender: FDA-Public Use
  Company Number: JP-BRISTOL-MYERS SQUIBB COMPANY-14856702

PATIENT
  Age: 83 Year
  Sex: Male
  Weight: 61 kg

DRUGS (7)
  1. HYDREA [Suspect]
     Indication: POLYCYTHAEMIA VERA
     Dosage: 1 DF = 100MG AM AND 500 MG PM
     Route: 048
  2. HYDREA [Suspect]
     Indication: MYELOPROLIFERATIVE DISORDER
     Dosage: 1 DF = 100MG AM AND 500 MG PM
     Route: 048
  3. STEROIDS [Suspect]
  4. ASPIRIN [Concomitant]
     Indication: PROPHYLAXIS
     Dosage: FORMULATION: TABS
     Route: 048
  5. NITROGLYCERIN [Concomitant]
     Indication: ANGINA PECTORIS
     Dosage: FORMULATION: TAPE
     Route: 061
  6. OMEPRAZOLE [Concomitant]
     Indication: REFLUX OESOPHAGITIS
     Dosage: FORMULATION: TABS
     Route: 048
  7. TOCOPHEROL ACETATE [Concomitant]
     Indication: PERIPHERAL VASCULAR DISORDER
     Dosage: FORMULATION: TAB
     Route: 048

REACTIONS (2)
  - ANGIOCENTRIC LYMPHOMA [None]
  - PULMONARY EMBOLISM [None]
